FAERS Safety Report 16430712 (Version 2)
Quarter: 2019Q2

REPORT INFORMATION
  Report Type: Report from Study
  Country: KR (occurrence: KR)
  Receive Date: 20190614
  Receipt Date: 20190625
  Transmission Date: 20190711
  Serious: Yes (Hospitalization)
  Sender: FDA-Public Use
  Company Number: KR-ROCHE-2336892

PATIENT
  Age: 56 Year
  Sex: Male
  Weight: 68.8 kg

DRUGS (11)
  1. DALTEPARIN [Concomitant]
     Active Substance: DALTEPARIN
     Indication: AORTIC THROMBOSIS
     Route: 065
     Dates: start: 20190227
  2. ACLOFEN [Concomitant]
     Route: 065
     Dates: start: 20190610, end: 20190611
  3. RO6874281 (FAP IL2V MAB) [Suspect]
     Active Substance: RO-6874281
     Indication: NEOPLASM
     Dosage: DATE OF MOST RECENT DOSE OF RO6874281 PRIOR TO AE/SAE ONSET 10/JUN/2019 AT 13:40 10 MG
     Route: 042
     Dates: start: 20190610
  4. ROSUVASTATIN. [Concomitant]
     Active Substance: ROSUVASTATIN
     Route: 065
     Dates: start: 20190227
  5. METOCLOPRAMIDE. [Concomitant]
     Active Substance: METOCLOPRAMIDE
     Route: 065
     Dates: start: 20190610, end: 20190610
  6. SUSPEN ER [Concomitant]
     Route: 065
     Dates: start: 20190610, end: 20190612
  7. ATEZOLIZUMAB. [Suspect]
     Active Substance: ATEZOLIZUMAB
     Indication: NEOPLASM
     Dosage: DATE OF MOST RECENT DOSE OF ATEZOLIZUMAB PRIOR TO AE/SAE 10/JUN/2019 AT 10:38
     Route: 042
     Dates: start: 20190610
  8. CHLORPHENIRAMINE MALEATE. [Concomitant]
     Active Substance: CHLORPHENIRAMINE MALEATE
     Route: 065
     Dates: start: 20190610, end: 20190610
  9. RANITIDINE. [Concomitant]
     Active Substance: RANITIDINE
     Route: 065
     Dates: start: 20190610, end: 20190610
  10. GRANISETRON [Concomitant]
     Active Substance: GRANISETRON
     Route: 065
     Dates: start: 20190610, end: 20190610
  11. AMBRECT [Concomitant]
     Route: 065
     Dates: start: 20190524

REACTIONS (2)
  - Acute kidney injury [Recovered/Resolved]
  - Liver function test abnormal [Recovered/Resolved]

NARRATIVE: CASE EVENT DATE: 20190612
